FAERS Safety Report 6167192-8 (Version None)
Quarter: 2009Q2

REPORT INFORMATION
  Report Type: 
  Country: None (occurrence: None)
  Receive Date: 20090423
  Receipt Date: 20090409
  Transmission Date: 20091009
  Serious: Yes (Hospitalization)
  Sender: FDA-Public Use
  Company Number: 8044729

PATIENT
  Sex: Female

DRUGS (2)
  1. KEPPRA [Suspect]
     Indication: CONVULSION
     Dosage: 500 MG 3/D; IV
     Route: 042
  2. LORAZEPAM [Concomitant]

REACTIONS (1)
  - METASTASES TO CENTRAL NERVOUS SYSTEM [None]
